FAERS Safety Report 22245832 (Version 4)
Quarter: 2023Q4

REPORT INFORMATION
  Report Type: Report from Study
  Country: US (occurrence: US)
  Receive Date: 20230424
  Receipt Date: 20231229
  Transmission Date: 20240110
  Serious: Yes (Other)
  Sender: FDA-Public Use
  Company Number: US-OTSUKA-2023_010207

PATIENT
  Sex: Male
  Weight: 89.72 kg

DRUGS (1)
  1. CEDAZURIDINE\DECITABINE [Suspect]
     Active Substance: CEDAZURIDINE\DECITABINE
     Indication: Myelodysplastic syndrome
     Dosage: 1DF (35 MG DECITABINE AND 100 MG CEDAZURIDINE) DAILY (QD) ON DAYS 1-5 DAYS OF EACH 28 DAY CYCLE
     Route: 048
     Dates: start: 20230327

REACTIONS (5)
  - Platelet transfusion [Not Recovered/Not Resolved]
  - Nausea [Not Recovered/Not Resolved]
  - Haemoglobin decreased [Recovering/Resolving]
  - Red blood cell count decreased [Not Recovered/Not Resolved]
  - White blood cell count decreased [Unknown]
